FAERS Safety Report 9095630 (Version 2)
Quarter: 2014Q2

REPORT INFORMATION
  Report Type: Report from Study
  Country: MX (occurrence: MX)
  Receive Date: 20130220
  Receipt Date: 20140415
  Transmission Date: 20141212
  Serious: Yes (Hospitalization)
  Sender: FDA-Public Use
  Company Number: PHHY2013MX015292

PATIENT
  Age: 85 Year
  Sex: Male
  Weight: 70 kg

DRUGS (5)
  1. CO-DIOVAN [Suspect]
     Indication: HYPERTENSION
     Dosage: 1 DF( 160 MG VALS/12.5MG HYDROCLOR), DAILY
     Route: 048
  2. CO-DIOVAN [Suspect]
     Dosage: 0.5 DF( 160 MG VALS/12.5MG HYDROCLOR), DAILY
     Route: 048
  3. CRESTOR [Concomitant]
     Indication: BLOOD CHOLESTEROL INCREASED
     Dosage: 3 UKN, QW
     Dates: start: 199901
  4. DORIXINA FAST [Concomitant]
     Indication: ARTHROPATHY
     Dosage: 4 UKN, UNK (4 DAILY MAXIMUM)
     Dates: start: 201303
  5. DORIXINA FAST [Concomitant]
     Indication: SPINAL DISORDER

REACTIONS (4)
  - Prostatic disorder [Recovered/Resolved]
  - Blood pressure decreased [Recovered/Resolved]
  - Wrong technique in drug usage process [Not Recovered/Not Resolved]
  - Drug prescribing error [Unknown]
